FAERS Safety Report 6743773-5 (Version None)
Quarter: 2010Q2

REPORT INFORMATION
  Report Type: 
  Country: None (occurrence: None)
  Receive Date: 20100527
  Receipt Date: 20100517
  Transmission Date: 20101027
  Serious: Yes (Other)
  Sender: FDA-Public Use
  Company Number: US-AMGEN-QUU413144

PATIENT
  Sex: Female

DRUGS (2)
  1. NPLATE [Suspect]
     Indication: IDIOPATHIC THROMBOCYTOPENIC PURPURA
     Dates: start: 20090522, end: 20100212
  2. WINRHO [Concomitant]
     Dates: start: 20081114, end: 20090506

REACTIONS (1)
  - LUNG NEOPLASM MALIGNANT [None]
